FAERS Safety Report 4655394-9 (Version None)
Quarter: 2005Q2

REPORT INFORMATION
  Report Type: 
  Country: None (occurrence: None)
  Receive Date: 20050505
  Receipt Date: 20050414
  Transmission Date: 20051028
  Serious: Yes (Death, Hospitalization, Other)
  Sender: FDA-Public Use
  Company Number: USA050495691

PATIENT
  Age: 96 Year
  Sex: Female

DRUGS (2)
  1. EVISTA [Suspect]
     Indication: OSTEOPOROSIS
  2. UNSPECIFIED BLOOD PRESSURE MEDICINE [Concomitant]

REACTIONS (4)
  - ANXIETY [None]
  - FALL [None]
  - HIP FRACTURE [None]
  - RESPIRATORY ARREST [None]
